FAERS Safety Report 16158963 (Version 2)
Quarter: 2019Q2

REPORT INFORMATION
  Report Type: Spontaneous
  Country: DE (occurrence: DE)
  Receive Date: 20190404
  Receipt Date: 20190410
  Transmission Date: 20190711
  Serious: Yes (Other)
  Sender: FDA-Public Use
  Company Number: PHHY2019DE076349

PATIENT
  Age: 74 Year
  Sex: Female
  Weight: 74 kg

DRUGS (2)
  1. AMOXICILLIN. [Suspect]
     Active Substance: AMOXICILLIN
     Dosage: 1000 MG, BID
     Route: 048
  2. AMOXICILLIN. [Suspect]
     Active Substance: AMOXICILLIN
     Indication: DENTAL CARE
     Dosage: 3000 MG, UNK(PLANNED 3 TIMES 1000 MG FOR 10 DAYS, HCP REDUCED DOSE TO 2 X1000 MG/DAY)
     Route: 048

REACTIONS (1)
  - Intestinal haemorrhage [Not Recovered/Not Resolved]
